FAERS Safety Report 5930646-0 (Version None)
Quarter: 2008Q4

REPORT INFORMATION
  Report Type: 
  Country: None (occurrence: None)
  Receive Date: 20081027
  Receipt Date: 20081014
  Transmission Date: 20090506
  Serious: Yes (Death)
  Sender: FDA-Public Use
  Company Number: US-JNJFOC-20071004594

PATIENT
  Sex: Male
  Weight: 7.15 kg

DRUGS (2)
  1. INFANT TYLENOL COLD DECONGESTANT PLUS COUGH [Suspect]
     Indication: NASOPHARYNGITIS
  2. INFANTS COLD AND COUGH PREPARTION [Suspect]
     Indication: NASOPHARYNGITIS

REACTIONS (16)
  - ABDOMINAL DISCOMFORT [None]
  - ACCIDENTAL DEATH [None]
  - BLOOD CHLORIDE INCREASED [None]
  - BLOOD GLUCOSE DECREASED [None]
  - BLOOD POTASSIUM INCREASED [None]
  - BLOOD SODIUM DECREASED [None]
  - CARDIAC DISORDER [None]
  - DECREASED APPETITE [None]
  - DRUG TOXICITY [None]
  - METABOLIC DISORDER [None]
  - PETECHIAE [None]
  - PLEURAL DISORDER [None]
  - PULMONARY CONGESTION [None]
  - PULMONARY OEDEMA [None]
  - SPLEEN DISORDER [None]
  - VIRAL UPPER RESPIRATORY TRACT INFECTION [None]
